FAERS Safety Report 5865491-8 (Version None)
Quarter: 2008Q3

REPORT INFORMATION
  Report Type: 
  Country: None (occurrence: None)
  Receive Date: 20080829
  Receipt Date: 20080731
  Transmission Date: 20090109
  Serious: No
  Sender: FDA-Public Use
  Company Number: US-ABBOTT-08P-163-0468783-00

PATIENT
  Age: 50 Year
  Sex: Female

DRUGS (2)
  1. SIMCOR [Suspect]
     Indication: DRUG USE FOR UNKNOWN INDICATION
     Dosage: 500/20 MG
     Route: 048
     Dates: start: 20080717
  2. BLACK COHASH [Suspect]
     Indication: DRUG USE FOR UNKNOWN INDICATION
     Dates: start: 20080717, end: 20080731

REACTIONS (1)
  - NIPPLE PAIN [None]
